FAERS Safety Report 4342333-3 (Version None)
Quarter: 2004Q2

REPORT INFORMATION
  Report Type: 
  Country: None (occurrence: None)
  Receive Date: 20040420
  Receipt Date: 20040420
  Transmission Date: 20050107
  Serious: Yes (Life-Threatening, Hospitalization)
  Sender: FDA-Public Use
  Company Number: None

PATIENT
  Age: 19 Year
  Sex: Female
  Weight: 49.8957 kg

DRUGS (4)
  1. EFFEXOR XR [Suspect]
     Indication: DEPRESSION
     Dosage: DAILY - ORAL
     Route: 048
     Dates: start: 20031218
  2. SEREVENT [Concomitant]
  3. FLOVENT [Concomitant]
  4. FLONASE [Concomitant]

REACTIONS (1)
  - GRAND MAL CONVULSION [None]
